FAERS Safety Report 7002011-9 (Version None)
Quarter: 2010Q3

REPORT INFORMATION
  Report Type: 
  Country: None (occurrence: None)
  Receive Date: 20100920
  Receipt Date: 20100531
  Transmission Date: 20110219
  Serious: Yes (Disabling)
  Sender: FDA-Public Use
  Company Number: B0675171A

PATIENT
  Sex: Female

DRUGS (7)
  1. ZYLORIC [Suspect]
     Indication: PRODUCT USED FOR UNKNOWN INDICATION
     Dosage: 300MG PER DAY
     Route: 065
     Dates: start: 20100201, end: 20100401
  2. SERETIDE [Suspect]
     Route: 045
  3. DOLIPRANE [Suspect]
     Dosage: 1G THREE TIMES PER DAY
  4. TANAKAN [Suspect]
     Dosage: 40MG PER DAY
  5. ZOLOFT [Suspect]
     Dosage: 2U PER DAY
  6. CANDESARTAN CILEXETIL/HYDROCHLOROTHIAZIDE (ATACAND HCT) [Suspect]
  7. ATACAND [Concomitant]

REACTIONS (3)
  - DERMATITIS EXFOLIATIVE [None]
  - EOSINOPHILIA [None]
  - PRURITUS GENERALISED [None]
